FAERS Safety Report 11557978 (Version 1)
Quarter: 2015Q3

REPORT INFORMATION
  Report Type: Report from Study
  Country: CA (occurrence: CA)
  Receive Date: 20150928
  Receipt Date: 20150928
  Transmission Date: 20151125
  Serious: Yes (Other)
  Sender: FDA-Public Use
  Company Number: CA-AMGEN-CANSL2015098830

PATIENT
  Age: 76 Year
  Sex: Female

DRUGS (1)
  1. PROLIA [Suspect]
     Active Substance: DENOSUMAB
     Indication: PRODUCT USED FOR UNKNOWN INDICATION
     Dosage: 60 MG, Q6MO
     Route: 058
     Dates: start: 20131021

REACTIONS (4)
  - Fall [Recovered/Resolved]
  - Injury [Recovered/Resolved]
  - Loss of consciousness [Recovering/Resolving]
  - Neck pain [Recovered/Resolved]

NARRATIVE: CASE EVENT DATE: 20150921
